FAERS Safety Report 15342636 (Version 1)
Quarter: 2018Q3

REPORT INFORMATION
  Report Type: Spontaneous
  Country: BR (occurrence: BR)
  Receive Date: 20180903
  Receipt Date: 20180903
  Transmission Date: 20181010
  Serious: Yes (Other)
  Sender: FDA-Public Use
  Company Number: BR-INGENUS PHARMACEUTICALS, LLC-INF201808-000882

PATIENT
  Age: 64 Year
  Sex: Female

DRUGS (2)
  1. PACLITAXEL. [Suspect]
     Active Substance: PACLITAXEL
     Indication: LUNG NEOPLASM MALIGNANT
  2. CARBOPLATIN. [Suspect]
     Active Substance: CARBOPLATIN
     Indication: LUNG NEOPLASM MALIGNANT

REACTIONS (2)
  - Vocal cord paralysis [Unknown]
  - Dysphonia [Unknown]
